FAERS Safety Report 9193402 (Version 2)
Quarter: 2013Q2

REPORT INFORMATION
  Report Type: Spontaneous
  Country: US (occurrence: None)
  Receive Date: 20120703
  Receipt Date: 20121031
  Transmission Date: 20140414
  Serious: No
  Sender: FDA-Public Use
  Company Number: PHEH2012US008517

PATIENT
  Age: 55 Year
  Sex: Female

DRUGS (2)
  1. GILENYA [Suspect]
     Indication: MULTIPLE SCLEROSIS
     Route: 048
     Dates: start: 20120402
  2. LISINOPRIL (LISINOPRIL) [Concomitant]

REACTIONS (4)
  - Chest discomfort [None]
  - Neck pain [None]
  - Musculoskeletal pain [None]
  - Back pain [None]
